FAERS Safety Report 24461354 (Version 1)
Quarter: 2024Q4

REPORT INFORMATION
  Report Type: Report from Study
  Country: CA (occurrence: CA)
  Receive Date: 20241018
  Receipt Date: 20241018
  Transmission Date: 20250115
  Serious: No
  Sender: ROCHE
  Company Number: CA-ROCHE-3575762

PATIENT
  Sex: Male

DRUGS (12)
  1. RITUXAN [Suspect]
     Active Substance: RITUXIMAB
     Indication: Systemic lupus erythematosus
     Dosage: ON 03/JAN/2024, HE RECEIVE MOST RECENT DOSE OF RITUXAN.
     Route: 042
     Dates: start: 20200506
  2. CELLCEPT [Concomitant]
     Active Substance: MYCOPHENOLATE MOFETIL
  3. HYDROMORPHONE [Concomitant]
     Active Substance: HYDROMORPHONE
  4. METOPROLOL [Concomitant]
     Active Substance: METOPROLOL
  5. OMEGA 3 [Concomitant]
     Active Substance: CAPSAICIN
  6. PLAQUENIL [Concomitant]
     Active Substance: HYDROXYCHLOROQUINE SULFATE
  7. PREDNISONE [Concomitant]
     Active Substance: PREDNISONE
  8. WARFARIN [Concomitant]
     Active Substance: WARFARIN
  9. ZOPICLONE [Concomitant]
     Active Substance: ZOPICLONE
  10. FRAGMIN [Concomitant]
     Active Substance: DALTEPARIN SODIUM
  11. SERTRALINE [Concomitant]
     Active Substance: SERTRALINE HYDROCHLORIDE
  12. TELMISARTAN [Concomitant]
     Active Substance: TELMISARTAN

REACTIONS (1)
  - Nasopharyngitis [Unknown]
